APPROVED DRUG PRODUCT: ENPRESSE-21
Active Ingredient: ETHINYL ESTRADIOL; LEVONORGESTREL
Strength: 0.03MG,0.04MG,0.03MG;0.05MG,0.075MG,0.125MG
Dosage Form/Route: TABLET;ORAL-21
Application: A075809 | Product #001
Applicant: DURAMED PHARMACEUTICALS INC SUB BARR LABORATORIES INC
Approved: Jul 16, 2001 | RLD: No | RS: No | Type: DISCN